FAERS Safety Report 9640279 (Version 1)
Quarter: 2013Q4

REPORT INFORMATION
  Report Type: Spontaneous
  Country: JP (occurrence: JP)
  Receive Date: 20131023
  Receipt Date: 20131023
  Transmission Date: 20140711
  Serious: Yes (Other)
  Sender: FDA-Public Use
  Company Number: JP-RANBAXY-2013R1-74532

PATIENT
  Sex: Female

DRUGS (1)
  1. TRIAMCINOLONE [Suspect]
     Indication: TRIGGER FINGER
     Dosage: UNK
     Route: 065

REACTIONS (2)
  - Muscle rupture [Recovered/Resolved]
  - Joint contracture [Recovering/Resolving]
